FAERS Safety Report 23352090 (Version 4)
Quarter: 2024Q1

REPORT INFORMATION
  Report Type: Spontaneous
  Country: FR (occurrence: FR)
  Receive Date: 20231229
  Receipt Date: 20240228
  Transmission Date: 20240410
  Serious: Yes (Other)
  Sender: FDA-Public Use
  Company Number: FR-ROCHE-3434940

PATIENT
  Age: 7 Year
  Sex: Female
  Weight: 24.1 kg

DRUGS (31)
  1. METHOTREXATE [Suspect]
     Active Substance: METHOTREXATE
     Indication: B-cell lymphoma
     Dosage: 12 MILLIGRAM (MOST RECENT DOSE RECEIVED ON 11/AUG/2023)
     Route: 037
     Dates: start: 20230811
  2. HYDROCORTISONE [Suspect]
     Active Substance: HYDROCORTISONE
     Indication: B-cell lymphoma
     Dosage: 12 MILLIGRAM (START DATE OF MOST RECENT DOSE PRIOR TO SAE ONSET)
     Route: 037
     Dates: start: 20230811
  3. GLOFITAMAB [Suspect]
     Active Substance: GLOFITAMAB
     Indication: B-cell lymphoma
     Dosage: 0.7 MILLIGRAM (1X , TOTAL)
     Route: 042
     Dates: start: 20230818
  4. GLOFITAMAB [Suspect]
     Active Substance: GLOFITAMAB
     Dosage: 3.5 MILLIGRAM (RECEIVED MOST RECENT DOSE OF STUDY DRUG PRIOR TO EVENT)
     Route: 042
     Dates: start: 20230828
  5. OBINUTUZUMAB [Suspect]
     Active Substance: OBINUTUZUMAB
     Indication: B-cell lymphoma
     Dosage: 54 MILLIGRAM
     Route: 042
     Dates: start: 20230809
  6. OBINUTUZUMAB [Suspect]
     Active Substance: OBINUTUZUMAB
     Dosage: 490 MILLIGRAM (RECEIVED RECENT DOSE OF STUDY DRUG PRIOR TO EVENT)
     Route: 042
     Dates: start: 20230810
  7. ETOPOSIDE [Suspect]
     Active Substance: ETOPOSIDE
     Indication: B-cell lymphoma
     Dosage: 90 MILLIGRAM (ON 13/AUG/2023 RECEIVED MOST RECENT DOSE (90 MG) OF STUDY DRUG PRIOR TO EVENT)
     Route: 042
     Dates: start: 20230811
  8. MESNA [Suspect]
     Active Substance: MESNA
     Indication: B-cell lymphoma
     Dosage: 530 MILLIGRAM (ON 14/AUG/2023 RECEIVED MOST RECENT DOSE OF STUDY DRUG PRIOR TO EVENT)
     Route: 042
     Dates: start: 20230811
  9. CARBOPLATIN [Suspect]
     Active Substance: CARBOPLATIN
     Indication: B-cell lymphoma
     Dosage: 565 MILLIGRAM
     Route: 042
     Dates: start: 20230811
  10. CYTARABINE [Suspect]
     Active Substance: CYTARABINE
     Indication: B-cell lymphoma
     Dosage: 25 MILLIGRAM (START DATE OF MOST RECENT DOSE)
     Route: 037
     Dates: start: 20230811
  11. LENOGRASTIM [Suspect]
     Active Substance: LENOGRASTIM
     Indication: B-cell lymphoma
     Dosage: 5 MICROGRAM
     Route: 042
     Dates: start: 20230814
  12. LENOGRASTIM [Suspect]
     Active Substance: LENOGRASTIM
     Dosage: 118 MICROGRAM
     Route: 042
     Dates: start: 20230815
  13. IFOSFAMIDE [Suspect]
     Active Substance: IFOSFAMIDE
     Indication: B-cell lymphoma
     Dosage: 2.67 GRAM (ON 13/AUG/2023, RECEIVED MOST RECENT DOSE OF IFOSFAMIDE PRIOR TO EVENT)
     Route: 042
     Dates: start: 20230811
  14. HYDROCORTISONE [Concomitant]
     Active Substance: HYDROCORTISONE
     Dosage: 5 MILLIGRAM, QD
     Route: 048
  15. BACTRIM [Concomitant]
     Active Substance: SULFAMETHOXAZOLE\TRIMETHOPRIM
     Indication: Prophylaxis
     Dosage: 600 MILLIGRAM, QD
     Route: 048
     Dates: start: 202302, end: 20230907
  16. OXYGEN [Concomitant]
     Active Substance: OXYGEN
     Dosage: UNK
     Route: 065
  17. DOLIPRANE [Concomitant]
     Active Substance: ACETAMINOPHEN
     Indication: Pain
     Dosage: 350 MILLIGRAM, QD
     Route: 048
     Dates: start: 20230828, end: 20230828
  18. DOLIPRANE [Concomitant]
     Active Substance: ACETAMINOPHEN
     Dosage: 350 MILLIGRAM
     Route: 048
     Dates: start: 20230809, end: 20230810
  19. ATARAX [Concomitant]
     Active Substance: HYDROXYZINE HYDROCHLORIDE
     Indication: Anxiety
     Dosage: 20 MILLIGRAM, QD
     Route: 048
     Dates: start: 20230812, end: 202308
  20. INTRATECT [Concomitant]
     Active Substance: HUMAN IMMUNOGLOBULIN G
     Dosage: 10 GRAM, QD
     Route: 042
     Dates: start: 20230822, end: 20230822
  21. DEXAMETHASONE [Concomitant]
     Active Substance: DEXAMETHASONE
     Dosage: 12 MILLIGRAM, QD
     Route: 042
     Dates: start: 20230809, end: 20230809
  22. DEXAMETHASONE [Concomitant]
     Active Substance: DEXAMETHASONE
     Dosage: 12 MILLIGRAM, QD
     Route: 042
     Dates: start: 20230818, end: 20230818
  23. DEXAMETHASONE [Concomitant]
     Active Substance: DEXAMETHASONE
     Dosage: 10 MILLIGRAM, QD
     Route: 042
     Dates: start: 20230828, end: 20230828
  24. POLARAMINE [Concomitant]
     Active Substance: DEXCHLORPHENIRAMINE MALEATE
     Dosage: 5 MILLIGRAM, QD
     Route: 042
     Dates: start: 20230809, end: 20230810
  25. POLARAMINE [Concomitant]
     Active Substance: DEXCHLORPHENIRAMINE MALEATE
     Dosage: 5 MILLIGRAM, QD
     Route: 042
     Dates: start: 20230818, end: 20230818
  26. POLARAMINE [Concomitant]
     Active Substance: DEXCHLORPHENIRAMINE MALEATE
     Dosage: 5 MILLIGRAM, QD
     Route: 042
     Dates: start: 20230828, end: 20230828
  27. RASBURICASE [Concomitant]
     Active Substance: RASBURICASE
     Dosage: 4.7 MILLIGRAM, QD
     Route: 042
     Dates: start: 20230809, end: 20230810
  28. AMOXICILLIN [Concomitant]
     Active Substance: AMOXICILLIN
     Dosage: 2.25 GRAM, QD
     Route: 048
     Dates: start: 20230822, end: 20230828
  29. HYDROXYZINE [Concomitant]
     Active Substance: HYDROXYZINE HYDROCHLORIDE
     Dosage: UNK
     Route: 065
     Dates: start: 20230812
  30. ALOXI [Concomitant]
     Active Substance: PALONOSETRON HYDROCHLORIDE
     Indication: Vomiting
     Dosage: UNK
     Route: 065
  31. HALDOL [Concomitant]
     Active Substance: HALOPERIDOL
     Indication: Vomiting
     Dosage: 10 MILLIGRAM, QD
     Route: 065
     Dates: start: 20230811, end: 20230811

REACTIONS (1)
  - Cytokine release syndrome [Recovered/Resolved]

NARRATIVE: CASE EVENT DATE: 20230829
